FAERS Safety Report 24557603 (Version 1)
Quarter: 2024Q4

REPORT INFORMATION
  Report Type: Spontaneous
  Country: PT (occurrence: PT)
  Receive Date: 20241028
  Receipt Date: 20241028
  Transmission Date: 20250115
  Serious: Yes (Other)
  Sender: PFIZER
  Company Number: PT-SANDOZ-SDZ2024PT088123

PATIENT
  Age: 4 Year

DRUGS (1)
  1. RITUXIMAB [Suspect]
     Active Substance: RITUXIMAB
     Indication: Epstein-Barr virus associated lymphoproliferative disorder
     Dosage: UNK
     Route: 065

REACTIONS (2)
  - Intestinal perforation [Recovered/Resolved]
  - Off label use [Unknown]
